FAERS Safety Report 6680372-8 (Version None)
Quarter: 2010Q2

REPORT INFORMATION
  Report Type: 
  Country: None (occurrence: None)
  Receive Date: 20100412
  Receipt Date: 20100329
  Transmission Date: 20101027
  Serious: Yes (Hospitalization)
  Sender: FDA-Public Use
  Company Number: UTC-000977

PATIENT
  Age: 38 Year
  Sex: Female
  Weight: 79.4 kg

DRUGS (1)
  1. REMODULIN [Suspect]
     Dosage: 59.04 UG/KG (0.041 UG/KG, 1 IN 1 MIN), SUBCUTANEOUS
     Route: 058
     Dates: start: 20091106

REACTIONS (1)
  - OXYGEN SATURATION DECREASED [None]
